FAERS Safety Report 8792430 (Version 1)
Quarter: 2012Q4

REPORT INFORMATION
  Report Type: 
  Country: DE (occurrence: DE)
  Receive Date: 20120918
  Receipt Date: 20120918
  Transmission Date: 20130627
  Serious: Yes (Death, Hospitalization)
  Sender: FDA-Public Use
  Company Number: GXKR2012DE002942

PATIENT

DRUGS (1)
  1. METFORMIN [Suspect]
     Dosage: 2000 mg/day
     Route: 048

REACTIONS (3)
  - Staphylococcal sepsis [Fatal]
  - Lactic acidosis [Fatal]
  - Renal failure acute [Fatal]
